FAERS Safety Report 14557879 (Version 1)
Quarter: 2018Q1

REPORT INFORMATION
  Report Type: Spontaneous
  Country: GR (occurrence: GR)
  Receive Date: 20180221
  Receipt Date: 20180221
  Transmission Date: 20180509
  Serious: Yes (Hospitalization, Congenital Anomaly, Other)
  Sender: FDA-Public Use
  Company Number: GR-MYLANLABS-2018M1011439

PATIENT
  Age: 67 Year
  Sex: Male

DRUGS (6)
  1. ADENOSINE. [Suspect]
     Active Substance: ADENOSINE
     Dosage: 6 MG, UNK
     Route: 042
  2. CARVEDILOL MYLAN 6,25 MG [Suspect]
     Active Substance: CARVEDILOL
     Indication: TACHYCARDIA
     Route: 065
  3. ADENOSINE. [Suspect]
     Active Substance: ADENOSINE
     Dosage: 18 MG, UNK
     Route: 042
  4. AMIODARONE [Suspect]
     Active Substance: AMIODARONE
     Indication: PRODUCT USED FOR UNKNOWN INDICATION
     Dosage: UNK
     Route: 042
  5. ADENOSINE. [Suspect]
     Active Substance: ADENOSINE
     Indication: PRODUCT USED FOR UNKNOWN INDICATION
     Dosage: UNK
     Route: 042
  6. ESMOLOL [Concomitant]
     Active Substance: ESMOLOL HYDROCHLORIDE
     Indication: PRODUCT USED FOR UNKNOWN INDICATION
     Dosage: UNK
     Route: 042

REACTIONS (6)
  - Drug ineffective [Unknown]
  - Heart rate abnormal [Unknown]
  - Left ventricular dysfunction [Unknown]
  - Tachycardia induced cardiomyopathy [Unknown]
  - Haemodynamic instability [Unknown]
  - Drug resistance [Unknown]
